FAERS Safety Report 8791516 (Version 1)
Quarter: 2012Q4

REPORT INFORMATION
  Report Type: Spontaneous
  Country: US (occurrence: None)
  Receive Date: 20120914
  Receipt Date: 20120914
  Transmission Date: 20130627
  Serious: Yes (Other)
  Sender: FDA-Public Use
  Company Number: None

PATIENT
  Age: 42 Year
  Sex: Female
  Weight: 105 kg

DRUGS (1)
  1. JANUVIA TABLETS 100MG [Suspect]
     Indication: TYPE II DIABETES MELLITUS
     Route: 048
     Dates: start: 20120813, end: 20120913

REACTIONS (4)
  - Impaired healing [None]
  - Skin ulcer [None]
  - Pain in extremity [None]
  - Skin exfoliation [None]
